FAERS Safety Report 5816239-4 (Version None)
Quarter: 2008Q3

REPORT INFORMATION
  Report Type: 
  Country: None (occurrence: None)
  Receive Date: 20080721
  Receipt Date: 20080721
  Transmission Date: 20090109
  Serious: Yes (Other)
  Sender: FDA-Public Use
  Company Number: A0738603A

PATIENT
  Age: 46 Year
  Sex: Male

DRUGS (3)
  1. COMMIT [Suspect]
     Indication: SMOKING CESSATION THERAPY
     Route: 002
  2. ANTIHYPERTENSIVE [Concomitant]
  3. THYROID MEDICATION [Concomitant]

REACTIONS (3)
  - AGEUSIA [None]
  - ANOSMIA [None]
  - INTENTIONAL DRUG MISUSE [None]
